FAERS Safety Report 6993736-X (Version None)
Quarter: 2010Q3

REPORT INFORMATION
  Report Type: 
  Country: None (occurrence: None)
  Receive Date: 20100917
  Receipt Date: 20091208
  Transmission Date: 20110219
  Serious: No
  Sender: FDA-Public Use
  Company Number: US-ASTRAZENECA-2009UW02689

PATIENT
  Sex: Female
  Weight: 152 kg

DRUGS (11)
  1. SEROQUEL [Suspect]
     Indication: BIPOLAR DISORDER
     Route: 048
     Dates: start: 20020125, end: 20090201
  2. ABILIFY [Concomitant]
     Dates: start: 20090201
  3. WELLBUTRIN [Concomitant]
  4. PROMETHAZINE [Concomitant]
  5. NEXIUM [Concomitant]
  6. ZYRTEC [Concomitant]
  7. TRAZODONE HCL [Concomitant]
  8. DARVOCET [Concomitant]
  9. TEMAZEPAM [Concomitant]
  10. FLEXERIL [Concomitant]
  11. PROZAC [Concomitant]

REACTIONS (4)
  - AMNESIA [None]
  - GASTROOESOPHAGEAL REFLUX DISEASE [None]
  - HYPOAESTHESIA [None]
  - WEIGHT INCREASED [None]
